FAERS Safety Report 17572535 (Version 1)
Quarter: 2020Q1

REPORT INFORMATION
  Report Type: Spontaneous
  Country: US (occurrence: US)
  Receive Date: 20200317
  Receipt Date: 20200317
  Transmission Date: 20200409
  Serious: Yes (Hospitalization)
  Sender: FDA-Public Use
  Company Number: None

PATIENT
  Age: 51 Year
  Sex: Male

DRUGS (13)
  1. NORCO [Concomitant]
     Active Substance: ACETAMINOPHEN\HYDROCODONE BITARTRATE
  2. TYLENOL [Concomitant]
     Active Substance: ACETAMINOPHEN
  3. BETAMETHASONE DIPROPIONATE TOP OINT [Concomitant]
  4. VITAMIN B-1 [Concomitant]
     Active Substance: THIAMINE HYDROCHLORIDE
  5. FUROSEMIDE. [Concomitant]
     Active Substance: FUROSEMIDE
  6. MULTIVITAMIN [Concomitant]
     Active Substance: VITAMINS
  7. FERROUS SULFATE. [Concomitant]
     Active Substance: FERROUS SULFATE
  8. OMEPRAZOLE. [Concomitant]
     Active Substance: OMEPRAZOLE
  9. OPSUMIT [Suspect]
     Active Substance: MACITENTAN
     Indication: PULMONARY ARTERIAL HYPERTENSION
     Route: 048
     Dates: start: 20200106
  10. METOLAZONE. [Concomitant]
     Active Substance: METOLAZONE
  11. VITAMIN B12 [Concomitant]
     Active Substance: CYANOCOBALAMIN
  12. ATORVASTATIN [Concomitant]
     Active Substance: ATORVASTATIN
  13. WARFARIN [Suspect]
     Active Substance: WARFARIN

REACTIONS (6)
  - Dyspnoea [None]
  - Respiratory failure [None]
  - Oedema peripheral [None]
  - Cardiomegaly [None]
  - Fluid overload [None]
  - Pneumonia [None]

NARRATIVE: CASE EVENT DATE: 20200309
